FAERS Safety Report 7400578-X (Version None)
Quarter: 2011Q2

REPORT INFORMATION
  Report Type: 
  Country: None (occurrence: None)
  Receive Date: 20110407
  Receipt Date: 20110331
  Transmission Date: 20111010
  Serious: Yes (Other)
  Sender: FDA-Public Use
  Company Number: CA-PFIZER INC-2011072110

PATIENT
  Age: 65 Year
  Sex: Female

DRUGS (5)
  1. PANTOLOC ^NYCOMED^ [Concomitant]
     Dosage: UNK
  2. LYRICA [Suspect]
     Dosage: 25 MG, 2X/DAY
     Dates: start: 20110101
  3. LYRICA [Suspect]
     Dosage: 150 MG DAILY
  4. PREDNISONE [Concomitant]
     Dosage: 5 MG, UNK
  5. LYRICA [Suspect]
     Dosage: 125 MG DAILY

REACTIONS (2)
  - DIZZINESS [None]
  - ANOSMIA [None]
